FAERS Safety Report 7650002-7 (Version None)
Quarter: 2011Q3

REPORT INFORMATION
  Report Type: 
  Country: None (occurrence: None)
  Receive Date: 20110802
  Receipt Date: 20110720
  Transmission Date: 20111222
  Serious: Yes (Other)
  Sender: FDA-Public Use
  Company Number: US-ASTRAZENECA-2011SE43645

PATIENT
  Age: 370 Month
  Sex: Female

DRUGS (7)
  1. TRAZODONE HCL [Concomitant]
     Dates: start: 20050101, end: 20070101
  2. PAXIL [Concomitant]
     Route: 048
     Dates: start: 20030115
  3. LEXAPRO [Concomitant]
  4. GEODON [Concomitant]
     Dates: start: 20010101
  5. TRAZODONE HCL [Concomitant]
     Dates: start: 20010101
  6. SEROQUEL [Suspect]
     Route: 048
     Dates: start: 20030102
  7. ZYPREXA [Concomitant]
     Dates: start: 20010101

REACTIONS (7)
  - DIABETIC KETOACIDOSIS [None]
  - HYPERLIPIDAEMIA [None]
  - TYPE 2 DIABETES MELLITUS [None]
  - BACK PAIN [None]
  - BLOOD CHOLESTEROL INCREASED [None]
  - OBESITY [None]
  - DIABETIC NEUROPATHY [None]
